FAERS Safety Report 5826505-4 (Version None)
Quarter: 2008Q3

REPORT INFORMATION
  Report Type: 
  Country: None (occurrence: None)
  Receive Date: 20080723
  Receipt Date: 20080711
  Transmission Date: 20090109
  Serious: Yes (Other)
  Sender: FDA-Public Use
  Company Number: 030965

PATIENT
  Sex: Female

DRUGS (3)
  1. AYGESTIN [Suspect]
     Dosage: ORAL
     Route: 048
  2. PREMPRO [Suspect]
     Dosage: ORAL
     Route: 048
  3. PROVERA [Suspect]
     Dosage: ORAL
     Route: 048

REACTIONS (1)
  - BREAST CANCER FEMALE [None]
